FAERS Safety Report 21650544 (Version 1)
Quarter: 2022Q4

REPORT INFORMATION
  Report Type: Spontaneous
  Country: US (occurrence: None)
  Receive Date: 20221128
  Receipt Date: 20221128
  Transmission Date: 20230113
  Serious: No
  Sender: FDA-Public Use
  Company Number: 2022A375180

PATIENT
  Age: 40 Year
  Sex: Male

DRUGS (12)
  1. TEZSPIRE [Suspect]
     Active Substance: TEZEPELUMAB-EKKO
     Route: 065
  2. DUPILUMAB [Suspect]
     Active Substance: DUPILUMAB
     Indication: Asthma
     Dosage: 300 MG/2 ML
     Route: 065
     Dates: start: 20220316
  3. DUPILUMAB [Suspect]
     Active Substance: DUPILUMAB
     Indication: Illness
     Dosage: 300 MG/2 ML
     Route: 065
     Dates: start: 20220316
  4. DUPILUMAB [Suspect]
     Active Substance: DUPILUMAB
     Indication: Pulmonary vasculitis
     Dosage: 300 MG/2 ML
     Route: 065
     Dates: start: 20220316
  5. DUPILUMAB [Suspect]
     Active Substance: DUPILUMAB
     Indication: Eosinophilic granulomatosis with polyangiitis
     Dosage: 300 MG/2 ML
     Route: 065
     Dates: start: 20220316
  6. DUPILUMAB [Suspect]
     Active Substance: DUPILUMAB
     Indication: Granulomatosis with polyangiitis
     Dosage: 300 MG/2 ML
     Route: 065
     Dates: start: 20220316
  7. DUPILUMAB [Suspect]
     Active Substance: DUPILUMAB
     Indication: Asthma
     Dosage: 300 MG WEEKLY
     Route: 065
     Dates: start: 20220316
  8. DUPILUMAB [Suspect]
     Active Substance: DUPILUMAB
     Indication: Illness
     Dosage: 300 MG WEEKLY
     Route: 065
     Dates: start: 20220316
  9. DUPILUMAB [Suspect]
     Active Substance: DUPILUMAB
     Indication: Pulmonary vasculitis
     Dosage: 300 MG WEEKLY
     Route: 065
     Dates: start: 20220316
  10. DUPILUMAB [Suspect]
     Active Substance: DUPILUMAB
     Indication: Eosinophilic granulomatosis with polyangiitis
     Dosage: 300 MG WEEKLY
     Route: 065
     Dates: start: 20220316
  11. DUPILUMAB [Suspect]
     Active Substance: DUPILUMAB
     Indication: Granulomatosis with polyangiitis
     Dosage: 300 MG WEEKLY
     Route: 065
     Dates: start: 20220316
  12. PREDNISONE [Concomitant]
     Active Substance: PREDNISONE

REACTIONS (2)
  - Dyspnoea [Unknown]
  - Mass [Unknown]
